FAERS Safety Report 18062185 (Version 3)
Quarter: 2020Q3

REPORT INFORMATION
  Report Type: Spontaneous
  Country: US (occurrence: US)
  Receive Date: 20200724
  Receipt Date: 20200821
  Transmission Date: 20201103
  Serious: Yes (Death, Hospitalization, Other)
  Sender: FDA-Public Use
  Company Number: US-009507513-2007USA008386

PATIENT
  Sex: Male
  Weight: 95.24 kg

DRUGS (1)
  1. JANUVIA [Suspect]
     Active Substance: SITAGLIPTIN PHOSPHATE
     Indication: TYPE 2 DIABETES MELLITUS
     Dosage: 1 (100 MG) TABLET, DAILY
     Route: 048
     Dates: start: 20120503, end: 20180401

REACTIONS (53)
  - Metastases to liver [Fatal]
  - Malignant neoplasm progression [Unknown]
  - Spinal osteoarthritis [Unknown]
  - Gastrointestinal decompression [Unknown]
  - Pyrexia [Unknown]
  - Metastases to lymph nodes [Fatal]
  - Obstruction gastric [Unknown]
  - Renal infarct [Unknown]
  - Sepsis [Unknown]
  - Atelectasis [Unknown]
  - Electrolyte imbalance [Unknown]
  - Gastrointestinal wall thickening [Unknown]
  - Frontal sinus operation [Unknown]
  - Haematocrit decreased [Unknown]
  - Infection [Unknown]
  - Benign prostatic hyperplasia [Unknown]
  - Cerebral infarction [Unknown]
  - Pancreatic carcinoma metastatic [Fatal]
  - Intestinal obstruction [Unknown]
  - Arteriosclerosis coronary artery [Unknown]
  - Arthritis [Unknown]
  - Blood calcium decreased [Unknown]
  - Diverticulum intestinal [Unknown]
  - Blood glucose abnormal [Unknown]
  - Haemoglobin decreased [Unknown]
  - Ulcer [Unknown]
  - Atrial fibrillation [Unknown]
  - Pyelonephritis [Unknown]
  - Tumour invasion [Unknown]
  - Nose deformity [Not Recovered/Not Resolved]
  - Cardiomegaly [Unknown]
  - Nasal operation [Unknown]
  - Aphasia [Unknown]
  - Intestinal perforation [Unknown]
  - Ascites [Unknown]
  - Blood potassium decreased [Unknown]
  - Leukocytosis [Unknown]
  - Pancreatic atrophy [Unknown]
  - Oesophagitis [Unknown]
  - Blood albumin decreased [Unknown]
  - Speech disorder [Not Recovered/Not Resolved]
  - Prostatomegaly [Unknown]
  - Central venous catheterisation [Unknown]
  - Bone deformity [Not Recovered/Not Resolved]
  - Blood glucose increased [Unknown]
  - Asthenia [Unknown]
  - Fatigue [Unknown]
  - Intermittent claudication [Unknown]
  - Pancreatic fistula [Unknown]
  - Duodenal stenosis [Unknown]
  - Retroperitoneal mass [Unknown]
  - Confusional state [Not Recovered/Not Resolved]
  - Red blood cell count decreased [Unknown]

NARRATIVE: CASE EVENT DATE: 201711
